FAERS Safety Report 5193942-3 (Version None)
Quarter: 2006Q4

REPORT INFORMATION
  Report Type: 
  Country: None (occurrence: None)
  Receive Date: 20061228
  Receipt Date: 20061219
  Transmission Date: 20070319
  Serious: Yes (Other)
  Sender: FDA-Public Use
  Company Number: 2006UW28208

PATIENT
  Age: 57 Year
  Sex: Female

DRUGS (10)
  1. CRESTOR [Suspect]
     Indication: BLOOD CHOLESTEROL INCREASED
     Route: 048
     Dates: start: 20040101, end: 20060801
  2. JANTOVEN [Suspect]
     Indication: COAGULOPATHY
     Route: 048
     Dates: start: 20060801, end: 20060101
  3. JANTOVEN [Suspect]
     Dosage: 7.5 MG 5 DAYS A WEEK/ 5 MG 2 DAYS A WEEK
     Route: 048
     Dates: start: 20061101, end: 20061203
  4. JANTOVEN [Suspect]
     Dosage: 7.5 MG 4 DAYS A WEEK, 5 MG 3 DAYS A WEEK
     Route: 048
  5. JANTOVEN [Suspect]
     Route: 048
     Dates: start: 20061204
  6. LOTREL [Concomitant]
     Dates: start: 20030101
  7. SYNTHROID [Concomitant]
     Dates: start: 19990101
  8. HYDROCHLOROTHIAZIDE [Concomitant]
     Dates: start: 20030101
  9. OMEPRAZOLE [Concomitant]
     Dates: start: 20050101
  10. CITRUCEL [Concomitant]
     Dates: start: 20020101

REACTIONS (2)
  - HEPATIC ENZYME INCREASED [None]
  - INTERNATIONAL NORMALISED RATIO DECREASED [None]
